FAERS Safety Report 20424357 (Version 1)
Quarter: 2022Q1

REPORT INFORMATION
  Report Type: Report from Study
  Country: US (occurrence: US)
  Receive Date: 20220203
  Receipt Date: 20220203
  Transmission Date: 20220423
  Serious: Yes (Hospitalization)
  Sender: FDA-Public Use
  Company Number: US-EXELIXIS-CABO-21042159

PATIENT
  Sex: Male
  Weight: 77.111 kg

DRUGS (22)
  1. CABOMETYX [Suspect]
     Active Substance: CABOZANTINIB S-MALATE
     Indication: Renal cancer
     Dosage: 60 MG, QD
     Route: 048
     Dates: start: 20200515
  2. CABOMETYX [Suspect]
     Active Substance: CABOZANTINIB S-MALATE
     Indication: Metastases to liver
     Dosage: UNK
     Route: 048
  3. CABOMETYX [Suspect]
     Active Substance: CABOZANTINIB S-MALATE
     Indication: Cholangiocarcinoma
  4. LENVIMA [Suspect]
     Active Substance: LENVATINIB
     Indication: Renal cancer
     Dosage: UNK
     Dates: end: 20210805
  5. LENVIMA [Suspect]
     Active Substance: LENVATINIB
     Indication: Metastases to liver
  6. LENVIMA [Suspect]
     Active Substance: LENVATINIB
     Indication: Cholangiocarcinoma
  7. OXYMORPHONE HYDROCHLORIDE [Concomitant]
     Active Substance: OXYMORPHONE HYDROCHLORIDE
  8. AFINITOR [Concomitant]
     Active Substance: EVEROLIMUS
  9. LEVOTHYROXINE [Concomitant]
     Active Substance: LEVOTHYROXINE
  10. LISINOPRIL [Concomitant]
     Active Substance: LISINOPRIL
  11. LYRICA [Concomitant]
     Active Substance: PREGABALIN
  12. HYDROCODONE BITARTRATE [Concomitant]
     Active Substance: HYDROCODONE BITARTRATE
  13. VITAMIN B12 [Concomitant]
     Active Substance: CYANOCOBALAMIN
  14. ALEVE [Concomitant]
     Active Substance: NAPROXEN SODIUM
  15. FERROUS SULFATE [Concomitant]
     Active Substance: FERROUS SULFATE
  16. CALCIUM\CHOLECALCIFEROL [Concomitant]
     Active Substance: CALCIUM\CHOLECALCIFEROL
  17. MORPHINE [Concomitant]
     Active Substance: MORPHINE
  18. REGLAN [Concomitant]
     Active Substance: METOCLOPRAMIDE HYDROCHLORIDE
  19. TYLENOL WITH CODEINE [Concomitant]
     Active Substance: ACETAMINOPHEN\CODEINE PHOSPHATE
  20. VITAMIN D3 [Concomitant]
     Active Substance: CHOLECALCIFEROL
  21. PREGABALIN [Concomitant]
     Active Substance: PREGABALIN
  22. EVEROLIMUS [Concomitant]
     Active Substance: EVEROLIMUS

REACTIONS (8)
  - Malignant neoplasm progression [Unknown]
  - Poor peripheral circulation [Unknown]
  - Hypopnoea [Unknown]
  - Blood pressure systolic increased [Unknown]
  - Diarrhoea [Recovering/Resolving]
  - Abdominal pain upper [Unknown]
  - Nausea [Unknown]
  - Musculoskeletal chest pain [Not Recovered/Not Resolved]
